FAERS Safety Report 25668966 (Version 3)
Quarter: 2025Q3

REPORT INFORMATION
  Report Type: Spontaneous
  Country: EU (occurrence: EU)
  Receive Date: 20250812
  Receipt Date: 20250902
  Transmission Date: 20251021
  Serious: Yes (Death, Life-Threatening)
  Sender: Atnahs Healthcare
  Company Number: EU-MLMSERVICE-20250729-PI591856-00119-1

PATIENT

DRUGS (19)
  1. DIAZEPAM [Interacting]
     Active Substance: DIAZEPAM
     Indication: Product used for unknown indication
     Route: 065
  2. ALPRAZOLAM [Interacting]
     Active Substance: ALPRAZOLAM
     Indication: Product used for unknown indication
     Route: 065
  3. OXYCODONE HYDROCHLORIDE [Interacting]
     Active Substance: OXYCODONE HYDROCHLORIDE
     Indication: Product used for unknown indication
     Route: 065
  4. NITRAZEPAM [Interacting]
     Active Substance: NITRAZEPAM
     Indication: Product used for unknown indication
     Route: 065
  5. PREGABALIN [Interacting]
     Active Substance: PREGABALIN
     Indication: Product used for unknown indication
     Route: 065
  6. OLANZAPINE [Interacting]
     Active Substance: OLANZAPINE
     Indication: Product used for unknown indication
     Route: 065
  7. OLANZAPINE [Interacting]
     Active Substance: OLANZAPINE
  8. OLANZAPINE [Interacting]
     Active Substance: OLANZAPINE
  9. OLANZAPINE [Interacting]
     Active Substance: OLANZAPINE
  10. SILDENAFIL [Concomitant]
     Active Substance: SILDENAFIL
     Indication: Product used for unknown indication
     Route: 065
  11. SILDENAFIL [Concomitant]
     Active Substance: SILDENAFIL
  12. SILDENAFIL [Concomitant]
     Active Substance: SILDENAFIL
  13. SILDENAFIL [Concomitant]
     Active Substance: SILDENAFIL
  14. SILDENAFIL [Concomitant]
     Active Substance: SILDENAFIL
  15. CIPROFLOXACIN [Concomitant]
     Active Substance: CIPROFLOXACIN
     Indication: Product used for unknown indication
     Route: 065
  16. CIPROFLOXACIN [Concomitant]
     Active Substance: CIPROFLOXACIN
  17. CIPROFLOXACIN [Concomitant]
     Active Substance: CIPROFLOXACIN
  18. CIPROFLOXACIN [Concomitant]
     Active Substance: CIPROFLOXACIN
  19. CIPROFLOXACIN [Concomitant]
     Active Substance: CIPROFLOXACIN

REACTIONS (10)
  - Toxicity to various agents [Fatal]
  - Loss of consciousness [Unknown]
  - Unresponsive to stimuli [Unknown]
  - Respiratory depression [Fatal]
  - Counterfeit product administered [Fatal]
  - Potentiating drug interaction [Fatal]
  - Toxicity to various agents [Fatal]
  - Drug interaction [Fatal]
  - Substance abuse [Fatal]
  - Cyanosis [Unknown]

NARRATIVE: CASE EVENT DATE: 20210101
